FAERS Safety Report 8124561-4 (Version None)
Quarter: 2012Q1

REPORT INFORMATION
  Report Type: 
  Country: None (occurrence: None)
  Receive Date: 20120209
  Receipt Date: 20120128
  Transmission Date: 20120608
  Serious: Yes (Other)
  Sender: FDA-Public Use
  Company Number: US-BAYER-2012-011700

PATIENT
  Age: 13 Year
  Sex: Male
  Weight: 52 kg

DRUGS (6)
  1. ALLEGRA [Concomitant]
  2. CLONIDINE [Concomitant]
  3. ALKA-SELTZER PLUS COLD + COUGH [Suspect]
     Dosage: 2 DF, UNK
     Route: 048
     Dates: start: 20120128
  4. VENTOLIN [Concomitant]
  5. UNKNOWN [Concomitant]
  6. NYQUIL [Suspect]
     Dosage: 1 DF, UNK
     Dates: start: 20120128

REACTIONS (5)
  - FEELING ABNORMAL [None]
  - ANTICHOLINERGIC SYNDROME [None]
  - DIZZINESS [None]
  - ANXIETY [None]
  - UNEVALUABLE EVENT [None]
